FAERS Safety Report 9567203 (Version 1)
Quarter: 2013Q3

REPORT INFORMATION
  Report Type: Spontaneous
  Country: US (occurrence: US)
  Receive Date: 20130930
  Receipt Date: 20130930
  Transmission Date: 20140515
  Serious: No
  Sender: FDA-Public Use
  Company Number: US-AMGEN-USASP2012062345

PATIENT
  Age: 48 Year
  Sex: Female
  Weight: 48 kg

DRUGS (11)
  1. ENBREL [Suspect]
     Indication: PRODUCT USED FOR UNKNOWN INDICATION
     Dosage: 50 MG, QWK
     Route: 058
     Dates: start: 2002
  2. LISINOPRIL [Concomitant]
     Dosage: 10 MG, UNK
  3. LEVOTHYROXIN [Concomitant]
     Dosage: 50 MUG, UNK
  4. SINGULAIR [Concomitant]
     Dosage: 10 MG, UNK
  5. SYMBICORT [Concomitant]
     Dosage: 160-4.5
  6. ALBUTEROL                          /00139501/ [Concomitant]
     Dosage: 90 MUG, UNK
  7. ASPIRIN [Concomitant]
     Dosage: 81 MG, UNK
  8. CALCIUM [Concomitant]
     Dosage: 500 UNK, UNK
  9. VITAMIN D3 [Concomitant]
     Dosage: 5000 UNK, UNK
  10. VITAMIN D3 [Concomitant]
     Dosage: 2000 UNK, UNK
  11. MULTIVITAMINS, PLAIN [Concomitant]
     Dosage: UNK

REACTIONS (1)
  - Injection site pruritus [Unknown]
